FAERS Safety Report 6243679-4 (Version None)
Quarter: 2009Q2

REPORT INFORMATION
  Report Type: 
  Country: None (occurrence: None)
  Receive Date: 20090618
  Receipt Date: 20080616
  Transmission Date: 20091009
  Serious: Yes (Hospitalization, Disabling)
  Sender: FDA-Public Use
  Company Number: WAES 0804USA02135

PATIENT
  Age: 49 Year
  Sex: Female

DRUGS (4)
  1. COZAAR [Suspect]
     Indication: BLOOD PRESSURE INCREASED
     Dosage: 25 MG/DAILY/PO; 50 MG/DAILY/PO
     Route: 048
     Dates: start: 20000101, end: 20071231
  2. COZAAR [Suspect]
     Indication: HYPERTENSION
     Dosage: 25 MG/DAILY/PO; 50 MG/DAILY/PO
     Route: 048
     Dates: start: 20000101, end: 20071231
  3. COZAAR [Suspect]
     Indication: BLOOD PRESSURE INCREASED
     Dosage: 25 MG/DAILY/PO; 50 MG/DAILY/PO
     Route: 048
     Dates: start: 20071231, end: 20080401
  4. COZAAR [Suspect]
     Indication: HYPERTENSION
     Dosage: 25 MG/DAILY/PO; 50 MG/DAILY/PO
     Route: 048
     Dates: start: 20071231, end: 20080401

REACTIONS (8)
  - ABDOMINAL PAIN UPPER [None]
  - ANAEMIA [None]
  - CHEST PAIN [None]
  - FATIGUE [None]
  - GASTRITIS [None]
  - MUSCULOSKELETAL PAIN [None]
  - MYALGIA [None]
  - SINUS DISORDER [None]
